FAERS Safety Report 9226676 (Version 2)
Quarter: 2013Q2

REPORT INFORMATION
  Report Type: Spontaneous
  Country: US (occurrence: US)
  Receive Date: 20130412
  Receipt Date: 20130507
  Transmission Date: 20140414
  Serious: No
  Sender: FDA-Public Use
  Company Number: US-PFIZER INC-2013112303

PATIENT
  Age: 76 Year
  Sex: Female
  Weight: 136 kg

DRUGS (6)
  1. PANTOPRAZOLE [Suspect]
     Indication: GASTROOESOPHAGEAL REFLUX DISEASE
     Dosage: 40 MG, DAILY
     Route: 048
     Dates: start: 201208
  2. DIOVAN HCT [Concomitant]
     Indication: HYPERTENSION
     Dosage: 350 MG, UNK
  3. CARDIZEM CD [Concomitant]
     Indication: HYPERTENSION
     Dosage: 360 MG, UNK
  4. MUCINEX [Concomitant]
     Indication: CHRONIC OBSTRUCTIVE PULMONARY DISEASE
     Dosage: 600 MG, 3X/DAY
  5. ATIVAN [Concomitant]
     Dosage: 45 MG, 2X/DAY
  6. ACTOS [Concomitant]
     Indication: GLUCOSE TOLERANCE IMPAIRED
     Dosage: 50 MG, UNK

REACTIONS (4)
  - Drug ineffective [Unknown]
  - Burning sensation [Not Recovered/Not Resolved]
  - Paraesthesia [Not Recovered/Not Resolved]
  - Breast discomfort [Not Recovered/Not Resolved]
